FAERS Safety Report 15796729 (Version 1)
Quarter: 2019Q1

REPORT INFORMATION
  Report Type: Spontaneous
  Country: TR (occurrence: TR)
  Receive Date: 20190108
  Receipt Date: 20190108
  Transmission Date: 20190417
  Serious: Yes (Other)
  Sender: FDA-Public Use
  Company Number: TR-SUN PHARMACEUTICAL INDUSTRIES LTD-2018RR-195324

PATIENT
  Age: 57 Year
  Sex: Female

DRUGS (8)
  1. DEXAMETHASONE. [Suspect]
     Active Substance: DEXAMETHASONE
     Indication: PLASMA CELL MYELOMA
     Dosage: 20 MILLIGRAMS, IN DAYS 1, 2, 3 AND 4 OF THE WEEK, TWO COURSES
     Route: 048
  2. QUETIAPINE. [Suspect]
     Active Substance: QUETIAPINE
     Indication: BIPOLAR DISORDER
     Dosage: 25 MILLIGRAM, DAILY
     Route: 065
  3. CYCLOPHOSPHAMIDE. [Suspect]
     Active Substance: CYCLOPHOSPHAMIDE
     Indication: PLASMA CELL MYELOMA
     Dosage: 1 MILLIGRAM, ON THE FIRST DAY OF THE WEEK, TWO COURSES
     Route: 042
  4. CYCLOPHOSPHAMIDE. [Suspect]
     Active Substance: CYCLOPHOSPHAMIDE
     Dosage: 450 MILLIGRAM, ON DAYS 1, 8, 15 AND 22 OF THE MONTH, SIX COURSES
     Route: 048
  5. DEXAMETHASONE. [Suspect]
     Active Substance: DEXAMETHASONE
     Dosage: 40 MILLIGRAMS, N DAYS 1, 8, 15 AND 22 OF THE MONTH, SIX COURSES
     Route: 048
  6. BORTEZOMIB. [Suspect]
     Active Substance: BORTEZOMIB
     Indication: PLASMA CELL MYELOMA
     Dosage: 2.2 MILLIGRAM, ON DAYS 1, 8, 15 AND 22 OF THE MONTH, SIX COURSES
     Route: 058
  7. QUETIAPINE. [Suspect]
     Active Substance: QUETIAPINE
     Dosage: 100 MILLIGRAMS, DAILY
     Route: 065
  8. QUETIAPINE. [Suspect]
     Active Substance: QUETIAPINE
     Dosage: 200 MILLIGRAMS, DAILY
     Route: 065

REACTIONS (4)
  - Sedation [Unknown]
  - Drug effect incomplete [Unknown]
  - Drug ineffective [Unknown]
  - Mania [Recovering/Resolving]
